FAERS Safety Report 6398733-3 (Version None)
Quarter: 2009Q4

REPORT INFORMATION
  Report Type: 
  Country: None (occurrence: None)
  Receive Date: 20091013
  Receipt Date: 20091005
  Transmission Date: 20100525
  Serious: Yes (Hospitalization)
  Sender: FDA-Public Use
  Company Number: PHHO2009RU12342

PATIENT
  Sex: Female

DRUGS (5)
  1. VOLTAREN [Suspect]
     Dosage: UNK
  2. ACETYLSALICYLIC ACID [Suspect]
  3. METFORMIN HYDROCHLORIDE [Concomitant]
     Indication: TYPE 2 DIABETES MELLITUS
     Dosage: UNK
     Route: 048
     Dates: start: 20080301
  4. NOLIPREL [Concomitant]
  5. VASILIP [Concomitant]

REACTIONS (3)
  - ARTHRALGIA [None]
  - MENISCUS LESION [None]
  - MENISCUS REMOVAL [None]
